FAERS Safety Report 6801697-9 (Version None)
Quarter: 2010Q2

REPORT INFORMATION
  Report Type: 
  Country: None (occurrence: None)
  Receive Date: 20100629
  Receipt Date: 20100623
  Transmission Date: 20101027
  Serious: Yes (Hospitalization)
  Sender: FDA-Public Use
  Company Number: US-BRISTOL-MYERS SQUIBB COMPANY-15164908

PATIENT
  Age: 55 Year
  Sex: Male
  Weight: 44 kg

DRUGS (2)
  1. ERBITUX [Suspect]
     Indication: HEAD AND NECK CANCER
     Dosage: START DATE: 07MAY10
     Dates: start: 20100614, end: 20100614
  2. RADIATION THERAPY [Suspect]
     Indication: HEAD AND NECK CANCER
     Dosage: 1 DF= 58GY. NO OF FRACTIONS:30. NO OF ELAPSED DAYS:29
     Dates: start: 20100507, end: 20100623

REACTIONS (3)
  - ANAEMIA [None]
  - GASTRITIS [None]
  - PANCREATITIS [None]
